FAERS Safety Report 6100107-7 (Version None)
Quarter: 2009Q1

REPORT INFORMATION
  Report Type: 
  Country: None (occurrence: None)
  Receive Date: 20090303
  Receipt Date: 20090224
  Transmission Date: 20090719
  Serious: Yes (Hospitalization)
  Sender: FDA-Public Use
  Company Number: JP-AVENTIS-200813774JP

PATIENT
  Age: 72 Year

DRUGS (17)
  1. CLEXANE [Suspect]
     Route: 058
     Dates: start: 20081120, end: 20081128
  2. AMLODIPINE [Concomitant]
     Dosage: DOSE: 2 TABLETS
  3. CARDENALIN [Concomitant]
     Dosage: DOSE: 2 TABLETS
  4. DIOVANE [Concomitant]
     Dosage: DOSE: 1 TABLET
  5. DIOVANE [Concomitant]
     Dosage: DOSE: 0.5 TABLET
  6. VOLTAREN-XR [Concomitant]
     Dates: start: 20081120, end: 20081127
  7. MUCOSTA [Concomitant]
     Dosage: DOSE: 3 TABLETS
     Dates: start: 20081119, end: 20081121
  8. LOBU [Concomitant]
     Dosage: DOSE: 3 TABETS
  9. NORVASC [Concomitant]
     Dosage: DOSE: 1 TABLET
  10. CARBADOGEN [Concomitant]
     Dosage: DOSE: 1 TABLET
  11. GOREI-SAN [Concomitant]
     Dosage: DOSE: 7.5 G
  12. ALOSENN                            /00476901/ [Concomitant]
     Dosage: DOSE: 2 PACKS
  13. MAGNESIUM OXIDE [Concomitant]
     Dosage: DOSE: 2 PACKAGES
  14. MAGNESIUM OXIDE [Concomitant]
     Dosage: DOSE: 2 G
  15. MILTAX [Concomitant]
  16. TOUCHRON [Concomitant]
  17. FERROMIA                           /00023516/ [Concomitant]
     Dosage: DOSE: 4 TABLETS
     Dates: end: 20081205

REACTIONS (5)
  - C-REACTIVE PROTEIN INCREASED [None]
  - HEPATIC FUNCTION ABNORMAL [None]
  - NAUSEA [None]
  - PRURITUS [None]
  - PYREXIA [None]
